FAERS Safety Report 5812374-5 (Version None)
Quarter: 2008Q3

REPORT INFORMATION
  Report Type: 
  Country: None (occurrence: None)
  Receive Date: 20080716
  Receipt Date: 20080707
  Transmission Date: 20090109
  Serious: Yes (Hospitalization, Disabling)
  Sender: FDA-Public Use
  Company Number: FR-PFIZER INC-2008056239

PATIENT
  Sex: Male

DRUGS (6)
  1. CAMPTOSAR [Suspect]
     Indication: COLON CANCER
     Route: 042
     Dates: start: 20080207, end: 20080320
  2. CAMPTOSAR [Suspect]
     Indication: METASTASES TO LIVER
  3. CETUXIMAB [Suspect]
     Indication: COLON CANCER
     Route: 042
     Dates: start: 20080207, end: 20080320
  4. CETUXIMAB [Suspect]
     Indication: METASTASES TO LIVER
  5. FLUOROURACIL [Suspect]
     Indication: COLON CANCER
     Route: 042
     Dates: start: 20080207, end: 20080320
  6. FLUOROURACIL [Suspect]
     Indication: METASTASES TO LIVER

REACTIONS (3)
  - CONDITION AGGRAVATED [None]
  - FACIAL PALSY [None]
  - HERPES ZOSTER [None]
